FAERS Safety Report 9702734 (Version 2)
Quarter: 2013Q4

REPORT INFORMATION
  Report Type: Spontaneous
  Country: CH (occurrence: None)
  Receive Date: 20131120
  Receipt Date: 20131231
  Transmission Date: 20140711
  Serious: Yes (Hospitalization)
  Sender: FDA-Public Use
  Company Number: 20130653

PATIENT
  Age: 57 Year
  Sex: Female
  Weight: 40 kg

DRUGS (2)
  1. FERINJECT [Suspect]
     Indication: PRODUCT USED FOR UNKNOWN INDICATION
     Dosage: MONTHS INTRAVENOUS DRIP
     Route: 041
     Dates: start: 2012, end: 20130722
  2. ASTHMA [Concomitant]

REACTIONS (5)
  - Feeling abnormal [None]
  - Headache [None]
  - Dizziness [None]
  - Nausea [None]
  - Bronchospasm [None]
